FAERS Safety Report 9404916 (Version 1)
Quarter: 2013Q3

REPORT INFORMATION
  Report Type: Report from Study
  Country: BE (occurrence: BE)
  Receive Date: 20130717
  Receipt Date: 20130717
  Transmission Date: 20140515
  Serious: Yes (Hospitalization)
  Sender: FDA-Public Use
  Company Number: BE-TEVA-418929ISR

PATIENT
  Age: 74 Year
  Sex: Female

DRUGS (45)
  1. OXALIPLATIN [Suspect]
     Indication: COLORECTAL CANCER METASTATIC
     Dosage: MOST RECENT DOSE OF OXALIPLATIN PRIOR TO AE ONSET: 18-SEP-2012
     Route: 042
     Dates: start: 20120612
  2. FLUOROURACIL [Suspect]
     Indication: COLORECTAL CANCER METASTATIC
     Dosage: MOST RECENT DOSE OF 5-FU PRIOR TO AE ONSET: 13-NOV-2012
     Route: 040
     Dates: start: 20120612
  3. FLUOROURACIL [Suspect]
     Dosage: MOST RECENT DOSE OF 5-FU PRIOR TO AE ONSET: 13-NOV-2012
     Route: 042
     Dates: start: 20120612
  4. MEGF0444A (ANTI-EGFL7) OR PLACEBO [Suspect]
     Indication: COLORECTAL CANCER METASTATIC
     Dosage: MOST RECENT DOSE OF DRUG OR PLACEBO PRIOR TO AE ONSET 13-11-2012
     Route: 042
     Dates: start: 20120612, end: 20120612
  5. BEVACIZUMAB,931932 [Suspect]
     Indication: COLORECTAL CANCER METASTATIC
     Dosage: MOST RECENT DOSE OF BEVACIZUMAB PRIOR TO AE ONSET: 13-NOV-2012
     Route: 042
     Dates: start: 20120612
  6. LEUCOVORIN CALCIUM [Suspect]
     Indication: COLORECTAL CANCER METASTATIC
     Dosage: MOST RECENT DOSE OF FOLINIC ACID PRIOR TO AE ONSET: 13-NOV-2012
     Route: 042
     Dates: start: 20120612
  7. LITICAN [Concomitant]
     Indication: NAUSEA
     Route: 048
     Dates: start: 20120612, end: 20130212
  8. LITICAN [Concomitant]
     Route: 042
  9. BISOPROLOL [Concomitant]
     Indication: HYPERTENSION
     Dosage: 10 MILLIGRAM DAILY;
     Route: 048
     Dates: end: 20130306
  10. BISOPROLOL [Concomitant]
     Dosage: 5 MILLIGRAM DAILY;
     Route: 048
     Dates: start: 20130307, end: 20130307
  11. BISOPROLOL [Concomitant]
     Dosage: 10 MILLIGRAM DAILY;
     Route: 048
     Dates: start: 20130308, end: 20130308
  12. BISOPROLOL [Concomitant]
     Dosage: 5 MILLIGRAM DAILY;
     Route: 048
     Dates: start: 20130309
  13. BROMAZEPAM [Concomitant]
     Indication: INSOMNIA
     Dosage: 12 MILLIGRAM DAILY;
     Route: 048
     Dates: end: 20130307
  14. BROMAZEPAM [Concomitant]
     Dosage: 3 MILLIGRAM DAILY;
     Route: 048
     Dates: start: 20130313, end: 20130315
  15. BROMAZEPAM [Concomitant]
     Dosage: 6 MILLIGRAM DAILY;
     Route: 048
     Dates: start: 20130318
  16. MOTILIUM [Concomitant]
     Indication: ABDOMINAL PAIN UPPER
     Dosage: 10 MILLIGRAM DAILY;
     Route: 048
  17. MOTILIUM [Concomitant]
     Indication: NAUSEA
  18. LASIX [Concomitant]
     Indication: HYPERTENSION
     Dosage: 20 MILLIGRAM DAILY;
     Route: 048
     Dates: start: 20120601, end: 20121211
  19. LASIX [Concomitant]
     Dosage: 20 MILLIGRAM DAILY;
     Route: 042
     Dates: start: 20130212, end: 20130212
  20. AMLOR [Concomitant]
     Indication: HYPERTENSION
     Dosage: 5 MILLIGRAM DAILY;
     Route: 048
     Dates: start: 20120619
  21. DEXAMETHASONE [Concomitant]
     Dosage: 20 MILLIGRAM DAILY;
     Route: 042
     Dates: start: 20120612, end: 20121113
  22. DEXAMETHASONE [Concomitant]
     Dosage: 20 MILLIGRAM DAILY;
     Route: 042
     Dates: start: 20130103, end: 20130212
  23. ZOFRAN [Concomitant]
     Dosage: 8 MILLIGRAM DAILY;
     Route: 042
     Dates: start: 20120612, end: 20121113
  24. ZOFRAN [Concomitant]
     Dosage: 5 MILLIGRAM DAILY;
     Route: 048
     Dates: start: 20120613
  25. ZOFRAN [Concomitant]
     Dosage: 8 MILLIGRAM DAILY;
     Route: 048
     Dates: start: 20130115, end: 20130217
  26. ZOFRAN [Concomitant]
     Dosage: 8 MILLIGRAM DAILY;
     Route: 042
     Dates: start: 20130103, end: 20130212
  27. CALCIUM CARBONATE [Concomitant]
     Indication: PALMAR-PLANTAR ERYTHRODYSAESTHESIA SYNDROME
     Dosage: 2 GRAM DAILY;
     Route: 042
     Dates: start: 20120612
  28. MAGNESIUM SULFATE [Concomitant]
     Indication: PALMAR-PLANTAR ERYTHRODYSAESTHESIA SYNDROME
     Dosage: 2 GRAM DAILY;
     Route: 042
     Dates: start: 20120612
  29. ZOCOR [Concomitant]
     Indication: HYPERCHOLESTEROLAEMIA
     Dosage: 20 MILLIGRAM DAILY;
     Route: 048
     Dates: start: 20120612
  30. PANTOMED [Concomitant]
     Indication: GASTRIC ULCER
     Dosage: 40 MILLIGRAM DAILY;
     Route: 048
     Dates: start: 20121212, end: 20130225
  31. PANTOMED [Concomitant]
     Dosage: 40 MILLIGRAM DAILY;
     Route: 048
     Dates: start: 20130226, end: 20130307
  32. ZALDIAR [Concomitant]
     Dosage: TRAMADOL HYDROCHLORIDE 37.5MG, PARACETAMOL 325MG
     Route: 048
     Dates: start: 20130222, end: 20130307
  33. MS CONTIN [Concomitant]
     Dosage: 10 MILLIGRAM DAILY;
     Route: 048
     Dates: start: 20130226, end: 20130307
  34. MEDROL [Concomitant]
     Dosage: 32 MILLIGRAM DAILY;
     Route: 048
     Dates: start: 20130226, end: 20130302
  35. STEOVIT [Concomitant]
     Indication: OSTEOPOROSIS PROPHYLAXIS
     Dosage: 1 GRAM DAILY;
     Route: 048
     Dates: start: 20130307
  36. D-CURE [Concomitant]
     Indication: OSTEOPOROSIS PROPHYLAXIS
     Dosage: 25000 IU (INTERNATIONAL UNIT) DAILY;
     Route: 048
  37. DAFALGAN [Concomitant]
     Indication: INTERVERTEBRAL DISC COMPRESSION
     Dosage: 1 GRAM DAILY;
     Route: 048
     Dates: start: 20130307
  38. DOLZAM [Concomitant]
     Indication: INTERVERTEBRAL DISC COMPRESSION
     Dosage: 50 MILLIGRAM DAILY;
     Route: 048
     Dates: start: 20130309, end: 20130311
  39. TRAZOLAN [Concomitant]
     Indication: INSOMNIA
     Dosage: 50 MILLIGRAM DAILY;
     Route: 048
     Dates: start: 20130308, end: 20130310
  40. FLEET [Concomitant]
     Indication: CONSTIPATION
     Dosage: 133 ML DAILY;
     Route: 054
     Dates: start: 20130312, end: 20130312
  41. TRANSTEC [Concomitant]
     Indication: INTERVERTEBRAL DISC COMPRESSION
     Dosage: 17.5 MICROGRAM DAILY;
     Route: 062
     Dates: start: 20130311, end: 20130313
  42. OXYNORM [Concomitant]
     Indication: INTERVERTEBRAL DISC COMPRESSION
     Route: 048
     Dates: start: 20130314, end: 20130316
  43. TRAZODONE [Concomitant]
     Indication: INSOMNIA
     Dosage: 50 MILLIGRAM DAILY;
     Route: 048
     Dates: start: 20130316, end: 20130317
  44. XANAX [Concomitant]
     Indication: ANXIETY
     Route: 048
     Dates: start: 20130318, end: 20130319
  45. TEMESTA [Concomitant]
     Indication: AGGRESSION
     Dosage: 1 MILLIGRAM DAILY;
     Route: 048
     Dates: start: 20130318, end: 20130318

REACTIONS (1)
  - Polyneuropathy [Not Recovered/Not Resolved]
